FAERS Safety Report 5386422-3 (Version None)
Quarter: 2007Q3

REPORT INFORMATION
  Report Type: 
  Country: None (occurrence: None)
  Receive Date: 20070710
  Receipt Date: 20070628
  Transmission Date: 20080115
  Serious: Yes (Other)
  Sender: FDA-Public Use
  Company Number: 100#08#2007-02420

PATIENT
  Age: 34 Year
  Sex: Male

DRUGS (1)
  1. CIPROFLOXACIN [Suspect]
     Indication: URINARY TRACT INFECTION
     Dosage: 2 COURSES, SECOND COURSE 1 MONTH AFTER THE FIRST ONE ORAL
     Route: 048

REACTIONS (5)
  - CONTRACTED BLADDER [None]
  - CULTURE URINE POSITIVE [None]
  - CYSTOSCOPY ABNORMAL [None]
  - DYSURIA [None]
  - TUBERCULOSIS [None]
